FAERS Safety Report 6438016-6 (Version None)
Quarter: 2009Q4

REPORT INFORMATION
  Report Type: 
  Country: None (occurrence: None)
  Receive Date: 20091112
  Receipt Date: 20091030
  Transmission Date: 20100525
  Serious: Yes (Other)
  Sender: FDA-Public Use
  Company Number: TR-ELI_LILLY_AND_COMPANY-TR200907004428

PATIENT
  Age: 30 Year
  Sex: Female

DRUGS (1)
  1. HUMULIN N [Suspect]
     Indication: BLOOD GLUCOSE INCREASED
     Dosage: UNK UNK, 2/D
     Route: 058
     Dates: start: 20080414

REACTIONS (5)
  - ASTHMA [None]
  - ASTHMATIC CRISIS [None]
  - DRUG EXPOSURE DURING PREGNANCY [None]
  - DYSPHONIA [None]
  - PREMATURE LABOUR [None]
